FAERS Safety Report 7226557-3 (Version None)
Quarter: 2011Q1

REPORT INFORMATION
  Report Type: 
  Country: None (occurrence: None)
  Receive Date: 20110114
  Receipt Date: 20110106
  Transmission Date: 20110831
  Serious: Yes (Hospitalization, Other)
  Sender: FDA-Public Use
  Company Number: JP-JNJFOC-20100507040

PATIENT
  Sex: Female
  Weight: 52 kg

DRUGS (10)
  1. VOLTAREN [Concomitant]
     Indication: RHEUMATOID ARTHRITIS
     Route: 054
  2. REMICADE [Suspect]
     Route: 042
  3. METOLATE [Concomitant]
     Indication: RHEUMATOID ARTHRITIS
     Route: 048
  4. REMICADE [Suspect]
     Indication: RHEUMATOID ARTHRITIS
     Route: 042
  5. REMICADE [Suspect]
     Route: 042
  6. BLOPRESS [Concomitant]
     Indication: HYPERTENSION
     Route: 048
  7. HYPEN [Concomitant]
     Indication: RHEUMATOID ARTHRITIS
     Route: 048
  8. REMICADE [Suspect]
     Dosage: FIRST INFUSION
     Route: 042
  9. REMICADE [Suspect]
     Route: 042
  10. REMICADE [Suspect]
     Route: 042

REACTIONS (4)
  - INFUSION RELATED REACTION [None]
  - CYANOSIS [None]
  - PYREXIA [None]
  - TREMOR [None]
